FAERS Safety Report 18136350 (Version 1)
Quarter: 2020Q3

REPORT INFORMATION
  Report Type: Spontaneous
  Country: GB (occurrence: GB)
  Receive Date: 20200811
  Receipt Date: 20200811
  Transmission Date: 20201103
  Serious: Yes (Hospitalization)
  Sender: FDA-Public Use
  Company Number: GB-ASTRAZENECA-2020SE98945

PATIENT
  Age: 74 Year
  Sex: Male

DRUGS (13)
  1. THIAMINE. [Concomitant]
     Active Substance: THIAMINE
  2. FOLIC ACID. [Concomitant]
     Active Substance: FOLIC ACID
  3. ALLOPURINOL. [Concomitant]
     Active Substance: ALLOPURINOL
  4. FINASTERIDE. [Concomitant]
     Active Substance: FINASTERIDE
  5. SODIUM HYDROGEN CARBONATE [Concomitant]
     Active Substance: SODIUM BICARBONATE
  6. LACTULOSE. [Concomitant]
     Active Substance: LACTULOSE
     Dosage: 3.1?3.7G/5ML ? 500 ML
  7. BISOPROLOL [Concomitant]
     Active Substance: BISOPROLOL
  8. SIMVASTATIN. [Concomitant]
     Active Substance: SIMVASTATIN
     Dosage: EACH NIGHT.
  9. OMEPRAZOLE. [Suspect]
     Active Substance: OMEPRAZOLE
     Indication: DUODENAL ULCER
     Dosage: 40 MG DAILY, 56 CAPSULE ? STARTED IN AUGUST
     Route: 048
     Dates: start: 201908
  10. TAMSULOSIN [Concomitant]
     Active Substance: TAMSULOSIN
     Dosage: 400UG/INHAL DAILY
  11. MONOMIL XL [Concomitant]
     Active Substance: ISOSORBIDE MONONITRATE
     Dosage: HALF A TABLET TO BE TAKEN EACH MORNING 14 TABLET60.0MG UNKNOWN
     Route: 065
  12. CALCICHEW D3 [Concomitant]
     Active Substance: CALCIUM\CHOLECALCIFEROL
     Dosage: INCREASED RECENTLY FROM 1 DAILY DUE TO LOW CALCIUM ? NOW ON CALCICHEW D3 FORTE
  13. PARACETAMOL [Concomitant]
     Active Substance: ACETAMINOPHEN
     Dosage: TAKING +++

REACTIONS (2)
  - Blood calcium decreased [Unknown]
  - Hypomagnesaemia [Recovering/Resolving]
